FAERS Safety Report 20612724 (Version 1)
Quarter: 2022Q1

REPORT INFORMATION
  Report Type: Spontaneous
  Country: US (occurrence: US)
  Receive Date: 20220318
  Receipt Date: 20220318
  Transmission Date: 20220424
  Serious: No
  Sender: FDA-Public Use
  Company Number: US-PFIZER INC-2020056923

PATIENT
  Age: 33 Year
  Sex: Male

DRUGS (3)
  1. RAPAMUNE [Suspect]
     Active Substance: SIROLIMUS
     Indication: Vascular malformation
     Dosage: 3 MG, DAILY (2MG AT NIGHT 1MG IN AM)
     Route: 048
  2. RAPAMUNE [Suspect]
     Active Substance: SIROLIMUS
     Indication: Lymphangioleiomyomatosis
     Dosage: 4 MG, DAILY (1 MG TABLET, TAKE 1 TABLET BY MOUTH EVERY MORNING AND 3 TABLETS NIGHTLY)
     Route: 048
  3. RAPAMUNE [Suspect]
     Active Substance: SIROLIMUS
     Dosage: 1 MG, 2X/DAY (TAKE 2 TABLETS (2MG TOTAL) BY MOUTH TWO (2) TIMES A DAY)
     Route: 048

REACTIONS (3)
  - Drug ineffective [Unknown]
  - Off label use [Unknown]
  - Product use issue [Unknown]
